FAERS Safety Report 5500593-7 (Version None)
Quarter: 2007Q4

REPORT INFORMATION
  Report Type: 
  Country: None (occurrence: None)
  Receive Date: 20071029
  Receipt Date: 20071024
  Transmission Date: 20080405
  Serious: Yes (Death)
  Sender: FDA-Public Use
  Company Number: US-AVENTIS-200719800GDDC

PATIENT
  Age: 64 Year
  Sex: Male
  Weight: 118.84 kg

DRUGS (4)
  1. DOCETAXEL [Suspect]
     Indication: PROSTATE CANCER
     Route: 042
     Dates: start: 20070813, end: 20070813
  2. KETOCONAZOLE [Suspect]
     Indication: PROSTATE CANCER
     Route: 048
     Dates: start: 20070612, end: 20070830
  3. HYDROCORTISONE [Concomitant]
     Dosage: DOSE: 20 MG IN AM AND 10 MG IN PM CONCURRENT WITH KETOCONAZOLE
     Route: 048
     Dates: start: 20070612, end: 20070830
  4. DECADRON [Concomitant]
     Dosage: DOSE: 8 MG BID ON DAYS 0, 1 AND 2 WITH DOCETAXEL

REACTIONS (1)
  - PULMONARY EMBOLISM [None]
